FAERS Safety Report 22045604 (Version 5)
Quarter: 2023Q2

REPORT INFORMATION
  Report Type: Report from Study
  Country: US (occurrence: US)
  Receive Date: 20230228
  Receipt Date: 20230425
  Transmission Date: 20230721
  Serious: Yes (Hospitalization, Other)
  Sender: FDA-Public Use
  Company Number: US-GILEAD-2023-0618296

PATIENT
  Sex: Female

DRUGS (2)
  1. AMBRISENTAN [Suspect]
     Active Substance: AMBRISENTAN
     Indication: Pulmonary arterial hypertension
     Dosage: 10 MG, QD
     Route: 065
     Dates: start: 20230209
  2. TADALAFIL [Suspect]
     Active Substance: TADALAFIL
     Indication: Product used for unknown indication
     Dosage: UNK
     Route: 065

REACTIONS (16)
  - Right ventricular failure [Recovering/Resolving]
  - Pleural effusion [Recovering/Resolving]
  - Oxygen saturation decreased [Recovering/Resolving]
  - Acute respiratory failure [Not Recovered/Not Resolved]
  - Syncope [Unknown]
  - Blood glucose abnormal [Unknown]
  - Physical disability [Unknown]
  - Balance disorder [Unknown]
  - Positive airway pressure therapy [Unknown]
  - Chest discomfort [Unknown]
  - Sinus disorder [Unknown]
  - Nasal congestion [Not Recovered/Not Resolved]
  - Flushing [Unknown]
  - Palpitations [Unknown]
  - Headache [Unknown]
  - Dyspnoea [Unknown]
